FAERS Safety Report 26068258 (Version 2)
Quarter: 2025Q4

REPORT INFORMATION
  Report Type: Spontaneous
  Country: US (occurrence: US)
  Receive Date: 20251120
  Receipt Date: 20251226
  Transmission Date: 20260117
  Serious: No
  Sender: BIOVITRUM
  Company Number: US-BIOVITRUM-2025-US-015968

PATIENT
  Age: 86 Year
  Sex: Female

DRUGS (5)
  1. VONJO [Suspect]
     Active Substance: PACRITINIB
     Indication: Myeloproliferative neoplasm
     Dosage: TWICE DAILY
     Route: 048
     Dates: start: 20251111
  2. HYDROCODONE- ACETAMINOPHEN [Concomitant]
     Indication: Product used for unknown indication
  3. METAMUCIL FIBER [Concomitant]
     Indication: Product used for unknown indication
  4. WELL VITAMIN D3 [Concomitant]
     Indication: Product used for unknown indication
  5. YL VITAMIN C/VITAMIN C [Concomitant]
     Indication: Product used for unknown indication

REACTIONS (4)
  - Diarrhoea [Not Recovered/Not Resolved]
  - Vomiting [Not Recovered/Not Resolved]
  - Cough [Not Recovered/Not Resolved]
  - Off label use [Not Recovered/Not Resolved]

NARRATIVE: CASE EVENT DATE: 20251111
